FAERS Safety Report 20343493 (Version 1)
Quarter: 2022Q1

REPORT INFORMATION
  Report Type: Spontaneous
  Country: CA (occurrence: CA)
  Receive Date: 20220118
  Receipt Date: 20220118
  Transmission Date: 20220424
  Serious: Yes (Life-Threatening, Hospitalization)
  Sender: FDA-Public Use
  Company Number: CA-009507513-2201CAN003044

PATIENT
  Age: 63 Year
  Sex: Male

DRUGS (16)
  1. KEYTRUDA [Suspect]
     Active Substance: PEMBROLIZUMAB
     Dosage: 120 MILLIGRAM
  2. CARBOPLATIN [Suspect]
     Active Substance: CARBOPLATIN
     Dosage: 120 MILLIGRAM, FORMULATION: SOLUTION INTRAVENOUS
  3. PACLITAXEL [Suspect]
     Active Substance: PACLITAXEL
     Dosage: 169 MILLIGRAM, FORMULATION ASLO REPORTED AS LIQUID INTRAVENOUS
  4. ARANESP [Concomitant]
     Active Substance: DARBEPOETIN ALFA
     Dosage: FORMULATION: SOLUTION INTRAVENOUS
  5. CALCIUM [Concomitant]
     Active Substance: CALCIUM
  6. CELECOXIB [Concomitant]
     Active Substance: CELECOXIB
  7. HYDROMORPHONE [Concomitant]
     Active Substance: HYDROMORPHONE
  8. OLODATEROL HYDROCHLORIDE\TIOTROPIUM BROMIDE MONOHYDRATE [Concomitant]
     Active Substance: OLODATEROL HYDROCHLORIDE\TIOTROPIUM BROMIDE MONOHYDRATE
     Dosage: FOR ORAL INHALATION WITH INSPIOLTO RESPIMAT INHALER, SOLUTION INHALATION
  9. PANTOPRAZOLE [Concomitant]
     Active Substance: PANTOPRAZOLE
  10. PEG 3350 [Concomitant]
     Active Substance: POLYETHYLENE GLYCOL 3350
     Dosage: POWDER FOR SOLUTION ORAL
  11. RISPERDAL [Concomitant]
     Active Substance: RISPERIDONE
  12. ALBUTEROL [Concomitant]
     Active Substance: ALBUTEROL
  13. SENNA+ [Concomitant]
  14. SEROQUEL [Concomitant]
     Active Substance: QUETIAPINE FUMARATE
  15. CHOLECALCIFEROL [Concomitant]
     Active Substance: CHOLECALCIFEROL
  16. VITAMINS [Concomitant]
     Active Substance: VITAMINS

REACTIONS (2)
  - Pyrexia [Recovering/Resolving]
  - Sepsis [Recovering/Resolving]
